FAERS Safety Report 8891341 (Version 1)
Quarter: 2012Q4

REPORT INFORMATION
  Report Type: Spontaneous
  Country: US (occurrence: None)
  Receive Date: 20121102
  Receipt Date: 20121102
  Transmission Date: 20130627
  Serious: Yes (Other)
  Sender: FDA-Public Use
  Company Number: None

PATIENT
  Sex: Male
  Weight: 72.12 kg

DRUGS (2)
  1. SUMATRIPTAN [Suspect]
     Indication: MIGRAINE
     Route: 048
     Dates: start: 20090101, end: 20120701
  2. SUMATRIPTAN [Suspect]
     Route: 048
     Dates: start: 20090101, end: 20120701

REACTIONS (1)
  - Drug ineffective [None]
